FAERS Safety Report 5761374-2 (Version None)
Quarter: 2008Q2

REPORT INFORMATION
  Report Type: 
  Country: None (occurrence: None)
  Receive Date: 20080606
  Receipt Date: 20080529
  Transmission Date: 20081010
  Serious: Yes (Life-Threatening, Hospitalization, Other)
  Sender: FDA-Public Use
  Company Number: US-ABBOTT-08P-163-0448626-01

PATIENT
  Sex: Male
  Weight: 94.432 kg

DRUGS (3)
  1. RITONAVIR SOFT GELATIN CAPSULES [Suspect]
     Indication: HIV INFECTION
     Route: 048
     Dates: start: 20060714, end: 20080512
  2. INTELENCE [Concomitant]
     Indication: HIV INFECTION
     Route: 048
     Dates: start: 20060714, end: 20080512
  3. TMC-114 (PREZISTA) [Concomitant]
     Indication: HIV INFECTION
     Route: 048
     Dates: start: 20060714, end: 20080512

REACTIONS (1)
  - MYOCARDIAL INFARCTION [None]
